FAERS Safety Report 4880243-3 (Version None)
Quarter: 2006Q1

REPORT INFORMATION
  Report Type: 
  Country: None (occurrence: None)
  Receive Date: 20060111
  Receipt Date: 20051230
  Transmission Date: 20060701
  Serious: Yes (Other)
  Sender: FDA-Public Use
  Company Number: 2005153280

PATIENT
  Age: 75 Year
  Sex: Female
  Weight: 56.6996 kg

DRUGS (5)
  1. XALATAN [Suspect]
     Indication: GLAUCOMA
     Dosage: 1 DROP/DAY IN LEFT EYE (1.5 MCG, QD), OPHTHALMIC
     Route: 047
     Dates: start: 19970101
  2. HOMEOPATHIC PREPARATION (HOMEOPATHIC PREPARATION) [Suspect]
     Indication: ANXIETY
  3. MULTIVITAMIN AND MINERAL SUPPLEMENT (MINERALS NOS, VITAMINS NOS) [Concomitant]
  4. CALCIUM (CALCIUM) [Concomitant]
  5. MAGNESIUM (MAGNESIUM) [Concomitant]

REACTIONS (8)
  - DIZZINESS [None]
  - DRY MOUTH [None]
  - EYE DISCHARGE [None]
  - EYE PAIN [None]
  - GLAUCOMA SURGERY [None]
  - HEADACHE [None]
  - PHARMACEUTICAL PRODUCT COMPLAINT [None]
  - VISUAL FIELD DEFECT [None]
